FAERS Safety Report 10196410 (Version 1)
Quarter: 2014Q2

REPORT INFORMATION
  Report Type: Spontaneous
  Country: US (occurrence: None)
  Receive Date: 20140523
  Receipt Date: 20140523
  Transmission Date: 20141212
  Serious: Yes (Death)
  Sender: FDA-Public Use
  Company Number: None

PATIENT
  Age: 74 Year
  Sex: Female

DRUGS (3)
  1. CIPRO [Suspect]
     Dates: start: 20120922, end: 20120922
  2. FOSFOMYCIN [Suspect]
     Dates: start: 20120925, end: 20120925
  3. CHRONIC STEROID THERAPY FOR RA [Concomitant]

REACTIONS (17)
  - Drug-induced liver injury [None]
  - Nausea [None]
  - Confusional state [None]
  - Lethargy [None]
  - Liver injury [None]
  - Aspartate aminotransferase increased [None]
  - Blood alkaline phosphatase increased [None]
  - Ammonia increased [None]
  - Renal failure acute [None]
  - International normalised ratio increased [None]
  - Blood bilirubin increased [None]
  - Hypotension [None]
  - Condition aggravated [None]
  - Respiratory failure [None]
  - Ischaemic hepatitis [None]
  - Lung disorder [None]
  - Documented hypersensitivity to administered drug [None]
